FAERS Safety Report 8031461 (Version 2)
Quarter: 2013Q4

REPORT INFORMATION
  Report Type: Spontaneous
  Country: US (occurrence: US)
  Receive Date: 20110712
  Receipt Date: 20131205
  Transmission Date: 20140711
  Serious: Yes (Other)
  Sender: FDA-Public Use
  Company Number: US-PFIZER INC-2011154064

PATIENT
  Age: 48 Year
  Sex: Male

DRUGS (1)
  1. CHANTIX [Suspect]
     Indication: SMOKING CESSATION THERAPY
     Dosage: 1 MG, CONTINUING MONTH PACK AND CONTINUING WEEK PACK
     Dates: start: 20070101, end: 20071201

REACTIONS (6)
  - Intentional overdose [Unknown]
  - Suicide attempt [Unknown]
  - Suicide attempt [Unknown]
  - Depression [Unknown]
  - Anxiety [Unknown]
  - Nightmare [Unknown]
